FAERS Safety Report 18769211 (Version 1)
Quarter: 2021Q1

REPORT INFORMATION
  Report Type: Report from Study
  Country: ES (occurrence: ES)
  Receive Date: 20210121
  Receipt Date: 20210121
  Transmission Date: 20210419
  Serious: Yes (Other)
  Sender: FDA-Public Use
  Company Number: ES-SHIRE-SPV1-2009-01523

PATIENT
  Age: 6 Year
  Sex: Male
  Weight: 24 kg

DRUGS (48)
  1. IDURSULFASE [Suspect]
     Active Substance: IDURSULFASE
     Dosage: .5 MG/KG, 1X/WEEK
     Route: 042
     Dates: start: 20110216
  2. IDURSULFASE [Suspect]
     Active Substance: IDURSULFASE
     Dosage: .5 MG/KG, 1X/WEEK
     Route: 042
     Dates: start: 20200818
  3. HYDROCORTISON [Concomitant]
     Active Substance: HYDROCORTISONE
     Dosage: UNK
     Route: 048
     Dates: start: 20090625, end: 20090625
  4. IBUPROFEN. [Concomitant]
     Active Substance: IBUPROFEN
     Indication: PREMEDICATION
     Dosage: 100 MG, 1X/WEEK
     Dates: start: 20070418
  5. TESTOSTERONE. [Concomitant]
     Active Substance: TESTOSTERONE
     Indication: PRODUCT USED FOR UNKNOWN INDICATION
     Dosage: UNK
     Route: 065
     Dates: start: 20171212, end: 20180622
  6. MONTELUCAST [Concomitant]
     Active Substance: MONTELUKAST SODIUM
     Indication: RESPIRATORY DISORDER
     Dosage: UNK
     Route: 048
     Dates: start: 20090915
  7. AUGMENTINE [AMOXICILLIN;CLAVULANIC ACID] [Concomitant]
     Active Substance: AMOXICILLIN\CLAVULANIC ACID
     Indication: BRONCHITIS
     Dosage: UNK
     Route: 048
     Dates: start: 20091125, end: 200912
  8. ZAMENE [Concomitant]
     Active Substance: DEFLAZACORT
     Dosage: UNK
     Route: 048
     Dates: start: 20150302, end: 20150307
  9. AZITHROMYCIN ANHYDROUS. [Concomitant]
     Active Substance: AZITHROMYCIN ANHYDROUS
     Indication: PRODUCT USED FOR UNKNOWN INDICATION
     Dosage: UNK
     Route: 048
     Dates: start: 20180604, end: 20180607
  10. IDURSULFASE [Suspect]
     Active Substance: IDURSULFASE
     Indication: MUCOPOLYSACCHARIDOSIS II
     Dosage: .5 MG/KG, 1X/WEEK
     Route: 041
     Dates: start: 20070418
  11. ADRENALINA [Concomitant]
     Active Substance: EPINEPHRINE
     Indication: PREMEDICATION
     Dosage: .01 MG, AS REQ^D
     Dates: start: 20090625
  12. SYMBICORT [Concomitant]
     Active Substance: BUDESONIDE\FORMOTEROL FUMARATE DIHYDRATE
     Dosage: UNK
     Route: 050
     Dates: start: 20150302, end: 20150307
  13. POLARAMINE [Concomitant]
     Active Substance: DEXCHLORPHENIRAMINE MALEATE
     Indication: URTICARIA
     Dosage: UNK
     Route: 048
     Dates: start: 20160624, end: 20160625
  14. BISOLVON [Concomitant]
     Active Substance: BROMHEXINE HYDROCHLORIDE
     Indication: PRODUCT USED FOR UNKNOWN INDICATION
     Dosage: UNK
     Route: 048
     Dates: start: 20161123, end: 20161128
  15. FLUIDASA [ACETYLCYSTEINE] [Concomitant]
     Indication: BRONCHITIS
     Dosage: UNK
     Route: 048
     Dates: start: 20151102, end: 20151118
  16. FLUTOX [CLOPERASTINE FENDIZOATE] [Concomitant]
     Active Substance: CLOPERASTINE FENDIZOATE
     Indication: BRONCHOSPASM
     Dosage: UNK
     Route: 048
     Dates: start: 20170616, end: 20170620
  17. IDURSULFASE [Suspect]
     Active Substance: IDURSULFASE
     Dosage: .5 MG/KG, 1X/WEEK
     Route: 042
     Dates: start: 20080508
  18. IDURSULFASE [Suspect]
     Active Substance: IDURSULFASE
     Dosage: .5 MG/KG, 1X/WEEK
     Route: 042
     Dates: start: 20121106
  19. IDURSULFASE [Suspect]
     Active Substance: IDURSULFASE
     Dosage: .5 MG/KG, 1X/WEEK
     Route: 042
     Dates: start: 20141117
  20. IDURSULFASE [Suspect]
     Active Substance: IDURSULFASE
     Dosage: .5 MG/KG, 1X/WEEK
     Route: 042
     Dates: start: 20190510, end: 20200817
  21. HYDROCORTISON [Concomitant]
     Active Substance: HYDROCORTISONE
     Indication: PREMEDICATION
     Dosage: 100 MG, AS REQ^D
     Dates: start: 20090625
  22. SALBUTAMOL [Concomitant]
     Active Substance: ALBUTEROL
     Indication: BRONCHIAL DISORDER
     Dosage: UNK
     Route: 050
     Dates: start: 20150227, end: 20150228
  23. SYMBICORT [Concomitant]
     Active Substance: BUDESONIDE\FORMOTEROL FUMARATE DIHYDRATE
     Dosage: UNK
     Route: 048
     Dates: start: 20151102, end: 20151118
  24. MUCOSAN [AMBROXOL HYDROCHLORIDE] [Concomitant]
     Dosage: UNK
     Route: 048
     Dates: start: 20150302, end: 20150307
  25. DEXAMETHASONE. [Concomitant]
     Active Substance: DEXAMETHASONE
     Indication: RESPIRATORY DISORDER
     Dosage: UNK
     Route: 048
     Dates: start: 2005, end: 2007
  26. VENTOLINE [SALBUTAMOL] [Concomitant]
     Active Substance: ALBUTEROL SULFATE
     Indication: BRONCHITIS
     Dosage: UNK
     Route: 050
     Dates: start: 20091125, end: 200912
  27. ZAMENE [Concomitant]
     Active Substance: DEFLAZACORT
     Indication: BRONCHOSPASM
     Dosage: UNK
     Route: 048
     Dates: start: 20161123, end: 20161128
  28. IDURSULFASE [Suspect]
     Active Substance: IDURSULFASE
     Dosage: .5 MG/KG, 1X/WEEK
     Route: 042
     Dates: start: 20150202
  29. PULMICORT TURBUHALER [Concomitant]
     Active Substance: BUDESONIDE
     Indication: BRONCHIAL DISORDER
     Dosage: UNK
     Route: 050
     Dates: start: 20150227, end: 20150228
  30. MUCOSAN [AMBROXOL HYDROCHLORIDE] [Concomitant]
     Indication: BRONCHIAL DISORDER
     Dosage: UNK
     Route: 048
     Dates: start: 20150227, end: 20150227
  31. ADRENALINA [EPINEPHRINE] [Concomitant]
     Indication: PREMEDICATION
     Dosage: UNK
     Route: 050
     Dates: start: 20090625, end: 20090625
  32. DEFLAZACORT [Concomitant]
     Active Substance: DEFLAZACORT
     Indication: BRONCHOSPASM
     Dosage: UNK
     Route: 048
     Dates: start: 20170616, end: 20170620
  33. IDURSULFASE [Suspect]
     Active Substance: IDURSULFASE
     Dosage: .5 MG/KG, 1X/WEEK
     Route: 042
     Dates: start: 20071205
  34. IDURSULFASE [Suspect]
     Active Substance: IDURSULFASE
     Dosage: .5 MG/KG, 1X/WEEK
     Route: 042
     Dates: start: 20080715
  35. IDURSULFASE [Suspect]
     Active Substance: IDURSULFASE
     Dosage: .5 MG/KG, 1X/WEEK
     Route: 042
     Dates: start: 20150504
  36. TAMIFLU [Concomitant]
     Active Substance: OSELTAMIVIR PHOSPHATE
     Indication: INFLUENZA
     Dosage: UNK
     Route: 048
     Dates: start: 20091021
  37. DALSY [Concomitant]
     Active Substance: IBUPROFEN
     Indication: INFLUENZA
     Dosage: UNK
     Route: 048
     Dates: start: 20091021
  38. IDURSULFASE [Suspect]
     Active Substance: IDURSULFASE
     Dosage: .5 MG/KG, 1X/WEEK
     Route: 042
     Dates: start: 20130211
  39. SALBUTAMOL [Concomitant]
     Active Substance: ALBUTEROL
     Dosage: UNK
     Route: 050
     Dates: start: 2005, end: 200809
  40. SYMBICORT [Concomitant]
     Active Substance: BUDESONIDE\FORMOTEROL FUMARATE DIHYDRATE
     Indication: BRONCHOSPASM
     Dosage: UNK
     Route: 050
     Dates: start: 20170616, end: 20170620
  41. PREDNISOLONE. [Concomitant]
     Active Substance: PREDNISOLONE
     Indication: RESPIRATORY DISORDER
     Dosage: UNK
     Route: 050
     Dates: start: 2005, end: 2007
  42. URBASON [METHYLPREDNISOLONE ACETATE] [Concomitant]
     Indication: URTICARIA
     Dosage: UNK
     Route: 048
     Dates: start: 20160624, end: 20160625
  43. IDURSULFASE [Suspect]
     Active Substance: IDURSULFASE
     Dosage: .5 MG/KG, 1X/WEEK
     Route: 042
     Dates: start: 20130122
  44. IDURSULFASE [Suspect]
     Active Substance: IDURSULFASE
     Dosage: .5 MG/KG, 1X/WEEK
     Route: 042
     Dates: start: 20150112
  45. IDURSULFASE [Suspect]
     Active Substance: IDURSULFASE
     Dosage: .5 MG/KG, 1X/WEEK
     Route: 042
     Dates: start: 20170620, end: 20190429
  46. PULMICORT TURBUHALER [Concomitant]
     Active Substance: BUDESONIDE
     Dosage: UNK
     Route: 050
     Dates: start: 20091125, end: 200912
  47. AMOXICILLIN. [Concomitant]
     Active Substance: AMOXICILLIN
     Indication: INFECTION
     Dosage: UNK
     Route: 048
     Dates: start: 20151102, end: 20151118
  48. DEXCHLORPHENIRAMINE [Concomitant]
     Active Substance: DEXCHLORPHENIRAMINE
     Indication: PREMEDICATION
     Dosage: UNK
     Route: 048
     Dates: start: 20070418

REACTIONS (9)
  - Pyrexia [Recovered/Resolved]
  - Salivary hypersecretion [Recovered/Resolved]
  - Infusion related reaction [Recovered/Resolved]
  - Asphyxia [Recovered/Resolved]
  - Pruritus genital [Recovered/Resolved]
  - Headache [Recovered/Resolved]
  - Gait disturbance [Recovered/Resolved]
  - Somnolence [Recovered/Resolved]
  - Confusional state [Recovered/Resolved]

NARRATIVE: CASE EVENT DATE: 20090625
